FAERS Safety Report 7741995-8 (Version None)
Quarter: 2011Q3

REPORT INFORMATION
  Report Type: 
  Country: None (occurrence: None)
  Receive Date: 20110907
  Receipt Date: 20110907
  Transmission Date: 20111222
  Serious: Yes (Hospitalization)
  Sender: FDA-Public Use
  Company Number: None

PATIENT
  Age: 41 Year
  Sex: Female
  Weight: 62 kg

DRUGS (2)
  1. CARBOPLATIN [Suspect]
     Indication: BREAST CANCER STAGE IV
     Dosage: AUC 1.0 (150MG)IV
     Route: 042
     Dates: start: 20110823
  2. CETUXIMAB [Suspect]
     Dosage: 405 MG IV WEEKLY
     Route: 042
     Dates: start: 20110823

REACTIONS (4)
  - FATIGUE [None]
  - BODY TEMPERATURE INCREASED [None]
  - NECK PAIN [None]
  - STAPHYLOCOCCUS TEST POSITIVE [None]
